FAERS Safety Report 16034648 (Version 5)
Quarter: 2021Q4

REPORT INFORMATION
  Report Type: Spontaneous
  Country: US (occurrence: US)
  Receive Date: 20190305
  Receipt Date: 20211012
  Transmission Date: 20220303
  Serious: Yes (Other)
  Sender: FDA-Public Use
  Company Number: US-ROCHE-2277323

PATIENT
  Sex: Female

DRUGS (2)
  1. LUCENTIS [Suspect]
     Active Substance: RANIBIZUMAB
     Indication: Type 2 diabetes mellitus
     Route: 050
     Dates: start: 20170606, end: 20190225
  2. LUCENTIS [Suspect]
     Active Substance: RANIBIZUMAB
     Indication: Retinopathy proliferative

REACTIONS (3)
  - Suspected transmission of an infectious agent via product [Unknown]
  - Product quality issue [Unknown]
  - Pain [Unknown]
